FAERS Safety Report 9915908 (Version 1)
Quarter: 2014Q1

REPORT INFORMATION
  Report Type: Spontaneous
  Country: US (occurrence: None)
  Receive Date: 20140219
  Receipt Date: 20140219
  Transmission Date: 20141002
  Serious: Yes (Hospitalization, Other)
  Sender: FDA-Public Use
  Company Number: AUR-APL-2014-01701

PATIENT
  Age: 68 Year
  Sex: Male

DRUGS (23)
  1. LIDOCAINE [Suspect]
     Indication: VENTRICULAR FIBRILLATION
     Dosage: 2 G IV X I DOSE; 1-2 MG/MIN IV, INTRAVENOUS
     Route: 042
  2. DEXMEDETOMIDINE [Suspect]
     Indication: SEDATION
     Dosage: 0.8 PG/KG/H, UNKNOWN
  3. CEFTRIAXONE (CEFTRIAXONE) [Concomitant]
  4. PROPOFOL (PROPOFOL) [Concomitant]
  5. LORAZEPAM (LORAZEPAM) [Concomitant]
  6. FENTANYL (FENTANYL) [Concomitant]
  7. NOREPINEPHRINE (NOREPINEPHRINE) [Concomitant]
  8. VANCOMYCIN (VANCOMYCIN) [Concomitant]
  9. LEVOFLOXACIN (LEVOFLOXACIN) [Concomitant]
  10. AMIODARONE (AMIODARONE) [Concomitant]
  11. FAMOTIDINE (FAMOTIDINE) [Concomitant]
  12. ACETAMINOPHEN (PARACETAMOL) [Concomitant]
  13. ACETAMINOPHEN W/HYDROCODONE (PRECET/01554201/) [Concomitant]
  14. INSULIN (INSULIN) [Concomitant]
  15. EPINEPRINE (EPINEPHRINE) [Concomitant]
  16. MILRINONE (MILRINONE) [Concomitant]
  17. CEFAZOLIN (CEFAZOLIN) [Concomitant]
  18. BUMETANIDE (BUMETANIDE) [Concomitant]
  19. ASPIRIN (ACETYLSALICYLIC ACID) [Concomitant]
  20. DILTIAZEM (DILTIAZEM) [Concomitant]
  21. PIPERACILINA Y TAZOBACTAM (PIP/TAZO) [Concomitant]
  22. DIGOXIN (DIGOXIN) [Concomitant]
  23. FUROSEMIDE (FURSEDMIDE) [Concomitant]

REACTIONS (9)
  - Hyperthermia [None]
  - Unresponsive to stimuli [None]
  - Hypotonia [None]
  - Encephalopathy [None]
  - Atrial fibrillation [None]
  - Sick sinus syndrome [None]
  - Ischaemic stroke [None]
  - Blood creatine phosphokinase increased [None]
  - Drug level increased [None]
